FAERS Safety Report 16704204 (Version 2)
Quarter: 2022Q4

REPORT INFORMATION
  Report Type: Spontaneous
  Country: NL (occurrence: NL)
  Receive Date: 20190814
  Receipt Date: 20221220
  Transmission Date: 20230113
  Serious: Yes (Other)
  Sender: FDA-Public Use
  Company Number: None

PATIENT
  Sex: Female
  Weight: 82 kg

DRUGS (7)
  1. TAMOXIFEN [Suspect]
     Active Substance: TAMOXIFEN
     Indication: Breast cancer
     Route: 065
     Dates: start: 20171115, end: 20180701
  2. En 4x Lonquex injectie [Concomitant]
     Indication: Product used for unknown indication
     Route: 065
     Dates: start: 201809, end: 201810
  3. CLEMASTINE FUMARATE [Concomitant]
     Active Substance: CLEMASTINE FUMARATE
     Indication: Product used for unknown indication
     Route: 065
  4. chemo-kurenACT dens dose [Concomitant]
     Indication: Product used for unknown indication
     Route: 065
     Dates: end: 201901
  5. Something against nausea [Concomitant]
     Indication: Product used for unknown indication
     Route: 065
  6. chemo-cures: ACT dens dose [Concomitant]
     Indication: Product used for unknown indication
     Route: 065
     Dates: end: 201901
  7. DEXAMETHASONE [Interacting]
     Active Substance: DEXAMETHASONE
     Indication: Product used for unknown indication
     Route: 065

REACTIONS (1)
  - Ovarian germ cell teratoma stage I [Recovered/Resolved]
